FAERS Safety Report 16208690 (Version 4)
Quarter: 2021Q1

REPORT INFORMATION
  Report Type: Spontaneous
  Country: US (occurrence: US)
  Receive Date: 20190417
  Receipt Date: 20210107
  Transmission Date: 20210419
  Serious: Yes (Other)
  Sender: FDA-Public Use
  Company Number: US-GILEAD-2019-0402601

PATIENT
  Age: 35 Year
  Sex: Male

DRUGS (110)
  1. OLANZAPINE. [Concomitant]
     Active Substance: OLANZAPINE
  2. AMLODIPINE [Concomitant]
     Active Substance: AMLODIPINE BESYLATE
  3. RITONAVIR. [Concomitant]
     Active Substance: RITONAVIR
  4. SODIUM CHLORIDE. [Concomitant]
     Active Substance: SODIUM CHLORIDE
  5. LANTHANUM CARBONATE. [Concomitant]
     Active Substance: LANTHANUM CARBONATE
  6. GUAIFENESIN. [Concomitant]
     Active Substance: GUAIFENESIN
  7. HYDRALAZINE [Concomitant]
     Active Substance: HYDRALAZINE HYDROCHLORIDE
  8. MENTHOL. [Concomitant]
     Active Substance: MENTHOL
  9. CEFEPIME [Concomitant]
     Active Substance: CEFEPIME HYDROCHLORIDE
  10. CODEINE PHOSPHATE;PARACETAMOL [Concomitant]
     Active Substance: ACETAMINOPHEN\CODEINE PHOSPHATE
  11. LACTULOSE. [Concomitant]
     Active Substance: LACTULOSE
  12. GUAIFENESIN AND DEXTROMETHORPHAN [Concomitant]
     Active Substance: DEXTROMETHORPHAN\GUAIFENESIN
  13. DOCUSATE [Concomitant]
     Active Substance: DOCUSATE
  14. NICOTINE. [Concomitant]
     Active Substance: NICOTINE
  15. NEPHRO VITE RX [Concomitant]
     Active Substance: ASCORBIC ACID\BIOTIN\CALCIUM PANTOTHENATE\CYANOCOBALAMIN\FOLIC ACID\NIACINAMIDE\PYRIDOXINE HYDROCHLORIDE\RIBOFLAVIN\THIAMINE MONONITRATE
  16. IPRATROPIUM [Concomitant]
     Active Substance: IPRATROPIUM
  17. MAGNESIUM HYDROXIDE. [Concomitant]
     Active Substance: MAGNESIUM HYDROXIDE
  18. BIOTENE [GLUCOSE OXIDASE;LACTOPEROXIDASE] [Concomitant]
  19. POLYETHYLENE GLYCOL 3350. [Concomitant]
     Active Substance: POLYETHYLENE GLYCOL 3350
  20. CEFTRIAXONE. [Concomitant]
     Active Substance: CEFTRIAXONE
  21. SEVELAMER CARBONATE. [Concomitant]
     Active Substance: SEVELAMER CARBONATE
  22. HYDROXYZINE [Concomitant]
     Active Substance: HYDROXYZINE HYDROCHLORIDE
  23. MIRTAZAPINE. [Concomitant]
     Active Substance: MIRTAZAPINE
  24. CEFDINIR. [Concomitant]
     Active Substance: CEFDINIR
  25. DEXTROSE. [Concomitant]
     Active Substance: DEXTROSE
  26. METRONIDAZOLE. [Concomitant]
     Active Substance: METRONIDAZOLE
  27. OXYMETAZOLINE [Concomitant]
     Active Substance: OXYMETAZOLINE
  28. PANTOPRAZOLE [Concomitant]
     Active Substance: PANTOPRAZOLE
  29. ACETAMINOPHEN. [Concomitant]
     Active Substance: ACETAMINOPHEN
  30. HYDROMORPHONE [Concomitant]
     Active Substance: HYDROMORPHONE
  31. PSYLLIUM HUSK POWDER [Concomitant]
  32. ALBUTEROL [SALBUTAMOL] [Concomitant]
     Active Substance: ALBUTEROL
  33. SENNA [SENNOSIDE A+B] [Concomitant]
     Active Substance: SENNOSIDES A AND B
  34. CLINDAMYCIN. [Concomitant]
     Active Substance: CLINDAMYCIN
  35. PROMETHAZINE [Concomitant]
     Active Substance: PROMETHAZINE HYDROCHLORIDE
  36. LEVOFLOXACIN. [Concomitant]
     Active Substance: LEVOFLOXACIN
  37. INSULIN [Concomitant]
     Active Substance: INSULIN NOS
  38. LIDOCAINE. [Concomitant]
     Active Substance: LIDOCAINE
  39. HYDROCODONE/ACETAMINOPHEN [Concomitant]
     Active Substance: ACETAMINOPHEN\HYDROCODONE
  40. SIMETHICONE (DIMETHICONE) [Concomitant]
     Active Substance: DIMETHICONE
  41. MINERAL OIL. [Concomitant]
     Active Substance: MINERAL OIL
  42. CARVEDILOL. [Concomitant]
     Active Substance: CARVEDILOL
  43. MIDAZOLAM. [Concomitant]
     Active Substance: MIDAZOLAM
  44. CYPROHEPTADINE. [Concomitant]
     Active Substance: CYPROHEPTADINE
  45. AMMONIUM LACTATE. [Concomitant]
     Active Substance: AMMONIUM LACTATE
  46. WITCH HAZEL [HAMAMELIS VIRGINIANA EXTRACT] [Concomitant]
  47. SODIUM POLYSTYRENE SULFONATE. [Concomitant]
     Active Substance: SODIUM POLYSTYRENE SULFONATE
  48. FENTANYL. [Concomitant]
     Active Substance: FENTANYL
  49. ATAZANAVIR. [Concomitant]
     Active Substance: ATAZANAVIR
  50. HEPARIN SODIUM PORCINE [Concomitant]
     Active Substance: HEPARIN SODIUM
  51. BISACODYL. [Concomitant]
     Active Substance: BISACODYL
  52. DARUNAVIR [Concomitant]
     Active Substance: DARUNAVIR
  53. OMEPRAZOLE. [Concomitant]
     Active Substance: OMEPRAZOLE
  54. METOPROLOL TARTRATE. [Concomitant]
     Active Substance: METOPROLOL TARTRATE
  55. SULFAMETHOXAZOLE AND TRIMETHOPRIM [Concomitant]
     Active Substance: SULFAMETHOXAZOLE\TRIMETHOPRIM
  56. HYDROCORTISONE. [Concomitant]
     Active Substance: HYDROCORTISONE
  57. CALCIUM GLUCONATE. [Concomitant]
     Active Substance: CALCIUM GLUCONATE
  58. MORPHINE SULFATE. [Concomitant]
     Active Substance: MORPHINE SULFATE
  59. BISMUTH SUBSALICYLATE. [Concomitant]
     Active Substance: BISMUTH SUBSALICYLATE
  60. FAMOTIDINE. [Concomitant]
     Active Substance: FAMOTIDINE
  61. MEPERIDINE HCL [Concomitant]
     Active Substance: MEPERIDINE HYDROCHLORIDE
  62. MELATONIN [Concomitant]
     Active Substance: MELATONIN
  63. LACTATED RINGERS SOLUTION [Concomitant]
     Active Substance: CALCIUM CHLORIDE\POTASSIUM CHLORIDE\SODIUM CHLORIDE\SODIUM LACTATE
  64. ACYCLOVIR SODIUM. [Concomitant]
     Active Substance: ACYCLOVIR SODIUM
  65. DOLUTEGRAVIR [Concomitant]
     Active Substance: DOLUTEGRAVIR
  66. VIREAD [Suspect]
     Active Substance: TENOFOVIR DISOPROXIL FUMARATE
     Indication: HIV INFECTION
     Dosage: UNK
     Route: 048
     Dates: start: 201305, end: 201806
  67. DIPHENHYDRAMINE. [Concomitant]
     Active Substance: DIPHENHYDRAMINE
  68. BUSPIRONE [Concomitant]
     Active Substance: BUSPIRONE HYDROCHLORIDE
  69. BUPROPION. [Concomitant]
     Active Substance: BUPROPION
  70. LAMIVUDINE. [Concomitant]
     Active Substance: LAMIVUDINE
  71. VANCOMYCIN [Concomitant]
     Active Substance: VANCOMYCIN
  72. TEMAZEPAM. [Concomitant]
     Active Substance: TEMAZEPAM
  73. ERGOCALCIFEROL. [Concomitant]
     Active Substance: ERGOCALCIFEROL
  74. TESTOSTERONE. [Concomitant]
     Active Substance: TESTOSTERONE
  75. SODIUM FLUORIDE. [Concomitant]
     Active Substance: SODIUM FLUORIDE
  76. TRAMADOL. [Concomitant]
     Active Substance: TRAMADOL
  77. DIAZEPAM. [Concomitant]
     Active Substance: DIAZEPAM
  78. CHLORPROMAZINE. [Concomitant]
     Active Substance: CHLORPROMAZINE
  79. LOPERAMIDE [Concomitant]
     Active Substance: LOPERAMIDE
  80. SINCALIDE. [Concomitant]
     Active Substance: SINCALIDE
  81. DILTIAZEM. [Concomitant]
     Active Substance: DILTIAZEM
  82. AZITHROMYCIN ANHYDROUS. [Concomitant]
     Active Substance: AZITHROMYCIN ANHYDROUS
  83. ONDANSETRON [Concomitant]
     Active Substance: ONDANSETRON
  84. WARFARIN [Concomitant]
     Active Substance: WARFARIN
  85. PREDNISONE. [Concomitant]
     Active Substance: PREDNISONE
  86. HALOPERIDOL. [Concomitant]
     Active Substance: HALOPERIDOL
  87. IRON SUCROSE [Concomitant]
     Active Substance: IRON SUCROSE
  88. ALUMINUM HYDROXIDE [ALUMINIUM HYDROXIDE] [Concomitant]
     Active Substance: ALUMINUM HYDROXIDE
  89. ASPIRIN (E.C.) [Concomitant]
     Active Substance: ASPIRIN
  90. PROPRANOLOL [Concomitant]
     Active Substance: PROPRANOLOL HYDROCHLORIDE
  91. DOXYCYCLINE. [Concomitant]
     Active Substance: DOXYCYCLINE
  92. ESCITALOPRAM [Concomitant]
     Active Substance: ESCITALOPRAM OXALATE
  93. SILVER SULFADIAZINE. [Concomitant]
     Active Substance: SILVER SULFADIAZINE
  94. TRUVADA [Suspect]
     Active Substance: EMTRICITABINE\TENOFOVIR DISOPROXIL FUMARATE
     Indication: HIV INFECTION
     Dosage: UNK
     Route: 048
     Dates: start: 200909, end: 201105
  95. OXYCODONE AND ACETAMINOPHEN [Concomitant]
     Active Substance: ACETAMINOPHEN\OXYCODONE HYDROCHLORIDE
  96. ATORVASTATIN [Concomitant]
     Active Substance: ATORVASTATIN
  97. METHYLPREDNISOLONE SODIUM SUCCINATE. [Concomitant]
     Active Substance: METHYLPREDNISOLONE SODIUM SUCCINATE
  98. SODIUM BICARBONATE. [Concomitant]
     Active Substance: SODIUM BICARBONATE
  99. QUETIAPINE. [Concomitant]
     Active Substance: QUETIAPINE
  100. TRAZODONE [Concomitant]
     Active Substance: TRAZODONE HYDROCHLORIDE
  101. LACTOBACILLUS ACIDOPHILUS [Concomitant]
     Active Substance: LACTOBACILLUS ACIDOPHILUS
  102. MECLIZINE HCL [Concomitant]
     Active Substance: MECLIZINE HYDROCHLORIDE
  103. CHLORHEXIDINE [Concomitant]
     Active Substance: CHLORHEXIDINE
  104. FLUPHENAZINE [Concomitant]
     Active Substance: FLUPHENAZINE
  105. COBICISTAT;DARUNAVIR [Concomitant]
     Active Substance: COBICISTAT\DARUNAVIR ETHANOLATE
  106. AMITRIPTYLINE HCL [Concomitant]
     Active Substance: AMITRIPTYLINE
  107. GABAPENTIN. [Concomitant]
     Active Substance: GABAPENTIN
  108. ETRAVIRINE [Concomitant]
     Active Substance: ETRAVIRINE
  109. ABACAVIR. [Concomitant]
     Active Substance: ABACAVIR
  110. DICLOFENAC [Concomitant]
     Active Substance: DICLOFENAC

REACTIONS (9)
  - Pain [Not Recovered/Not Resolved]
  - Anxiety [Not Recovered/Not Resolved]
  - Emotional distress [Not Recovered/Not Resolved]
  - Economic problem [Not Recovered/Not Resolved]
  - Nephropathy [Not Recovered/Not Resolved]
  - Bone density decreased [Unknown]
  - End stage renal disease [Not Recovered/Not Resolved]
  - Renal failure [Not Recovered/Not Resolved]
  - Tooth loss [Not Recovered/Not Resolved]

NARRATIVE: CASE EVENT DATE: 20130513
